FAERS Safety Report 4759440-3 (Version None)
Quarter: 2005Q3

REPORT INFORMATION
  Report Type: 
  Country: None (occurrence: None)
  Receive Date: 20050831
  Receipt Date: 20050824
  Transmission Date: 20060218
  Serious: Yes (Hospitalization)
  Sender: FDA-Public Use
  Company Number: 2005120118

PATIENT
  Sex: Female

DRUGS (1)
  1. XANAX [Suspect]
     Indication: ILL-DEFINED DISORDER

REACTIONS (4)
  - BURNING SENSATION [None]
  - DYSPNOEA [None]
  - OEDEMA MOUTH [None]
  - PHARYNGOLARYNGEAL PAIN [None]
